FAERS Safety Report 21978047 (Version 2)
Quarter: 2023Q1

REPORT INFORMATION
  Report Type: Report from Study
  Country: CA (occurrence: None)
  Receive Date: 20230210
  Receipt Date: 20230217
  Transmission Date: 20230418
  Serious: Yes (Other)
  Sender: FDA-Public Use
  Company Number: CA-Merck Healthcare KGaA-9382271

PATIENT
  Sex: Male

DRUGS (2)
  1. SAIZEN [Suspect]
     Active Substance: SOMATROPIN
     Indication: Chronic kidney disease
     Dosage: STOPPED IN SUMMER 2021
  2. SAIZEN [Suspect]
     Active Substance: SOMATROPIN
     Dosage: RESTARTED
     Dates: start: 20210818

REACTIONS (1)
  - Immunosuppression [Not Recovered/Not Resolved]
